FAERS Safety Report 24623234 (Version 3)
Quarter: 2025Q1

REPORT INFORMATION
  Report Type: Report from Study
  Country: US (occurrence: US)
  Receive Date: 20241115
  Receipt Date: 20250217
  Transmission Date: 20250409
  Serious: Yes (Hospitalization, Other)
  Sender: ABBVIE
  Company Number: US-ABBVIE-6001573

PATIENT
  Age: 76 Year
  Sex: Female
  Weight: 83 kg

DRUGS (4)
  1. CREON [Suspect]
     Active Substance: PANCRELIPASE AMYLASE\PANCRELIPASE LIPASE\PANCRELIPASE PROTEASE
     Indication: Pancreatic failure
     Route: 048
     Dates: start: 20230701
  2. ZOLOFT [Concomitant]
     Active Substance: SERTRALINE HYDROCHLORIDE
     Indication: Anxiety
  3. LOSARTAN [Concomitant]
     Active Substance: LOSARTAN
     Indication: Hypertension
  4. CARVEDILOL [Concomitant]
     Active Substance: CARVEDILOL
     Indication: Cardiac disorder

REACTIONS (7)
  - Macular degeneration [Not Recovered/Not Resolved]
  - Chest pain [Recovered/Resolved]
  - Asthenopia [Not Recovered/Not Resolved]
  - Blood pressure fluctuation [Recovering/Resolving]
  - Heart rate decreased [Recovered/Resolved]
  - Aortic valve stenosis [Recovering/Resolving]
  - Palpitations [Not Recovered/Not Resolved]

NARRATIVE: CASE EVENT DATE: 20230101
